FAERS Safety Report 9665766 (Version 1)
Quarter: 2013Q4

REPORT INFORMATION
  Report Type: Spontaneous
  Country: US (occurrence: None)
  Receive Date: 20131031
  Receipt Date: 20131031
  Transmission Date: 20140711
  Serious: Yes (Life-Threatening)
  Sender: FDA-Public Use
  Company Number: None

PATIENT
  Age: 61 Year
  Sex: Female
  Weight: 61.24 kg

DRUGS (1)
  1. ALB. SULFATE INHALATION SOLUTION 2.5 MG / 3ML NEPHRON PHARM. CORP. [Suspect]
     Indication: CHRONIC OBSTRUCTIVE PULMONARY DISEASE
     Dosage: 1 VIAL FOUR TIMES DAILY INHALATION
     Route: 055
     Dates: start: 20130901, end: 20130922

REACTIONS (1)
  - Pneumonia [None]
